FAERS Safety Report 21450430 (Version 2)
Quarter: 2022Q4

REPORT INFORMATION
  Report Type: Spontaneous
  Country: BR (occurrence: BR)
  Receive Date: 20221013
  Receipt Date: 20221028
  Transmission Date: 20230113
  Serious: Yes (Hospitalization, Disabling)
  Sender: FDA-Public Use
  Company Number: BR-COLLEGIUM PHARMACEUTICAL, INC.-20221000326

PATIENT

DRUGS (13)
  1. NUCYNTA ER [Suspect]
     Active Substance: TAPENTADOL HYDROCHLORIDE
     Indication: Cancer pain
     Dosage: 1 DOSAGE FORM, EVERY 12 HRS, UNKNOWN
     Route: 065
     Dates: start: 20220905, end: 2022
  2. BUPRENORPHINE [Concomitant]
     Active Substance: BUPRENORPHINE
     Indication: Pain
  3. BUPRENORPHINE [Concomitant]
     Active Substance: BUPRENORPHINE
     Indication: Pain
  4. PREGABALIN [Concomitant]
     Active Substance: PREGABALIN
     Indication: Pain
     Dosage: 1 DOSAGE FORM, QD
  5. PREGABALIN [Concomitant]
     Active Substance: PREGABALIN
     Indication: Pain
     Dosage: 1 DOSAGE FORM, BID
  6. PREGABALIN [Concomitant]
     Active Substance: PREGABALIN
     Indication: Pain
     Dosage: UNK
  7. BUTYLSCOPOLAMINE BROMIDE [Concomitant]
     Active Substance: BUTYLSCOPOLAMINE BROMIDE
     Indication: Pain
     Dosage: UNK
  8. DYPIRON [Concomitant]
     Indication: Pain
     Dosage: UNK
  9. DYPIRON [Concomitant]
     Indication: Pain
     Dosage: DROPS, UNK
  10. HYDROCHLOROTHIAZIDE [Concomitant]
     Active Substance: HYDROCHLOROTHIAZIDE
     Indication: Hypertension
  11. ENALAPRIL [Concomitant]
     Active Substance: ENALAPRIL
     Indication: Hypertension
     Dosage: UNK
  12. NUTRIN [Concomitant]
     Indication: Product used for unknown indication
     Dosage: UNK
  13. COBAMAMIDE\CYPROHEPTADINE HYDROCHLORIDE [Concomitant]
     Active Substance: COBAMAMIDE\CYPROHEPTADINE HYDROCHLORIDE
     Indication: Increased appetite
     Dosage: UNK
     Dates: start: 20220921

REACTIONS (11)
  - Swelling face [Not Recovered/Not Resolved]
  - Oxygen saturation decreased [Not Recovered/Not Resolved]
  - Lip swelling [Not Recovered/Not Resolved]
  - Peripheral swelling [Recovering/Resolving]
  - Abdominal distension [Not Recovered/Not Resolved]
  - Joint swelling [Not Recovered/Not Resolved]
  - Confusional state [Not Recovered/Not Resolved]
  - Blood pressure decreased [Not Recovered/Not Resolved]
  - Disorientation [Not Recovered/Not Resolved]
  - Diarrhoea [Not Recovered/Not Resolved]
  - Vomiting [Not Recovered/Not Resolved]

NARRATIVE: CASE EVENT DATE: 20220501
